FAERS Safety Report 16873283 (Version 2)
Quarter: 2019Q4

REPORT INFORMATION
  Report Type: Spontaneous
  Country: PT (occurrence: PT)
  Receive Date: 20191001
  Receipt Date: 20191009
  Transmission Date: 20200122
  Serious: Yes (Life-Threatening, Hospitalization, Disabling, Other)
  Sender: FDA-Public Use
  Company Number: PT-ASTRAZENECA-2019SF36992

PATIENT
  Age: 21609 Day
  Sex: Male
  Weight: 140 kg

DRUGS (9)
  1. VARFINE [Concomitant]
     Active Substance: WARFARIN SODIUM
     Indication: ATRIAL FIBRILLATION
     Dosage: 5 MG, 10 MG
     Route: 048
  2. INSULIN GLARGINE [Concomitant]
     Active Substance: INSULIN GLARGINE
     Indication: TYPE 2 DIABETES MELLITUS
     Dosage: 36U AT BEDTIME
     Route: 058
  3. AMINOPHYLLINE. [Concomitant]
     Active Substance: AMINOPHYLLINE
     Dosage: 225 MG, ID
  4. AMLODIPINE [Concomitant]
     Active Substance: AMLODIPINE BESYLATE
     Indication: HYPERTENSION
     Dosage: 10 MG
     Route: 048
  5. FORXIGA [Suspect]
     Active Substance: DAPAGLIFLOZIN
     Indication: TYPE 2 DIABETES MELLITUS
     Dosage: 10 MG, ID
     Route: 048
     Dates: start: 20190409, end: 20190712
  6. FUROSEMIDE. [Concomitant]
     Active Substance: FUROSEMIDE
     Indication: HYPERTENSION
     Dosage: 40 MG
     Route: 048
  7. FUROSEMIDE. [Concomitant]
     Active Substance: FUROSEMIDE
     Indication: HYPERTENSION
     Dosage: 40 MG
     Route: 048
  8. INSULIN LISPRO [Concomitant]
     Active Substance: INSULIN LISPRO
     Indication: TYPE 2 DIABETES MELLITUS
     Dosage: 6+6+6
     Route: 058
  9. ATORVASTATIN [Concomitant]
     Active Substance: ATORVASTATIN
     Indication: DYSLIPIDAEMIA
     Dosage: 20 MG
     Route: 048

REACTIONS (6)
  - Hypovolaemia [Unknown]
  - Diabetic foot [Unknown]
  - Finger amputation [Unknown]
  - Injury [Recovering/Resolving]
  - Necrosis [Recovering/Resolving]
  - Toe amputation [Unknown]

NARRATIVE: CASE EVENT DATE: 20190709
